FAERS Safety Report 23487958 (Version 1)
Quarter: 2024Q1

REPORT INFORMATION
  Report Type: Spontaneous
  Country: CA (occurrence: None)
  Receive Date: 20240206
  Receipt Date: 20240206
  Transmission Date: 20240410
  Serious: Yes (Other)
  Sender: FDA-Public Use
  Company Number: 2024A029976

PATIENT
  Sex: Female

DRUGS (5)
  1. SYMBICORT [Suspect]
     Active Substance: BUDESONIDE\FORMOTEROL FUMARATE DIHYDRATE
     Indication: Asthma
     Dosage: 200 UG, (2 PUFFS IN THE MORNING AND 2 PUFFS IN THE EVENING IF NEEDED) FOUR TIMES A DAY
     Route: 055
  2. SYMBICORT [Suspect]
     Active Substance: BUDESONIDE\FORMOTEROL FUMARATE DIHYDRATE
     Indication: Pneumonia
     Dosage: 200 UG, (2 PUFFS IN THE MORNING AND 2 PUFFS IN THE EVENING IF NEEDED) FOUR TIMES A DAY
     Route: 055
  3. NEXIUM [Concomitant]
     Active Substance: ESOMEPRAZOLE MAGNESIUM
  4. ALBUTEROL [Concomitant]
     Active Substance: ALBUTEROL
  5. NASONEX [Concomitant]
     Active Substance: MOMETASONE FUROATE

REACTIONS (27)
  - Asphyxia [Unknown]
  - Pyrexia [Unknown]
  - Hypoaesthesia [Unknown]
  - Pain in extremity [Unknown]
  - Peripheral swelling [Unknown]
  - Wheezing [Unknown]
  - Productive cough [Unknown]
  - Nasal congestion [Unknown]
  - Dyspnoea [Unknown]
  - Pneumonia [Unknown]
  - Nasopharyngitis [Unknown]
  - Arthralgia [Unknown]
  - Rhinitis [Unknown]
  - Gait disturbance [Unknown]
  - Seasonal allergy [Unknown]
  - Foot deformity [Unknown]
  - Tendonitis [Unknown]
  - Arthritis [Unknown]
  - Headache [Unknown]
  - Joint swelling [Unknown]
  - Nausea [Unknown]
  - Feeling hot [Unknown]
  - Drug hypersensitivity [Unknown]
  - Feeling cold [Unknown]
  - Cough [Unknown]
  - Off label use [Unknown]
  - Drug ineffective [Unknown]
